FAERS Safety Report 5119431-X (Version None)
Quarter: 2006Q3

REPORT INFORMATION
  Report Type: 
  Country: None (occurrence: None)
  Receive Date: 20060928
  Receipt Date: 20060913
  Transmission Date: 20061208
  Serious: Yes (Hospitalization)
  Sender: FDA-Public Use
  Company Number: REM_00235_2006

PATIENT
  Age: 43 Year
  Sex: Female
  Weight: 66.4 kg

DRUGS (10)
  1. REMODULIN [Suspect]
     Indication: PULMONARY HYPERTENSION
     Dosage: 87 NG/KG/MIN CONTINUOUS IV
     Route: 042
     Dates: start: 20040114
  2. OXYGEN [Concomitant]
  3. NEURONTIN [Concomitant]
  4. SPIRONOLACTONE [Concomitant]
  5. DEMADEX [Concomitant]
  6. COUMADIN [Concomitant]
  7. IMODIUM [Concomitant]
  8. OMEPRAZOLE [Concomitant]
  9. SONATA [Concomitant]
  10. TYLENOL [Concomitant]

REACTIONS (18)
  - CATHETER RELATED INFECTION [None]
  - CHEST DISCOMFORT [None]
  - CHEST PAIN [None]
  - COUGH [None]
  - DECREASED ACTIVITY [None]
  - DECREASED APPETITE [None]
  - DYSPNOEA [None]
  - ENDOCARDITIS [None]
  - HEADACHE [None]
  - HYPERHIDROSIS [None]
  - KLEBSIELLA INFECTION [None]
  - MYALGIA [None]
  - NAUSEA [None]
  - PHARYNGOLARYNGEAL PAIN [None]
  - PSEUDOMONAS INFECTION [None]
  - RENAL FAILURE ACUTE [None]
  - SOMNOLENCE [None]
  - TACHYCARDIA [None]
